FAERS Safety Report 10071633 (Version 2)
Quarter: 2014Q2

REPORT INFORMATION
  Report Type: Spontaneous
  Country: US (occurrence: US)
  Receive Date: 20140411
  Receipt Date: 20140411
  Transmission Date: 20141212
  Serious: Yes (Other)
  Sender: FDA-Public Use
  Company Number: US-RANBAXY-2012US-62250

PATIENT
  Age: 25 Year
  Sex: Female

DRUGS (1)
  1. CIPROFLOXACIN [Suspect]
     Indication: PRODUCT USED FOR UNKNOWN INDICATION
     Dosage: 1 G, DAILY
     Route: 048

REACTIONS (3)
  - Mania [Recovering/Resolving]
  - Ataxia [Recovering/Resolving]
  - Psychotic disorder [Recovering/Resolving]
